FAERS Safety Report 4595573-2 (Version None)
Quarter: 2005Q1

REPORT INFORMATION
  Report Type: 
  Country: None (occurrence: None)
  Receive Date: 20050224
  Receipt Date: 20050203
  Transmission Date: 20050727
  Serious: Yes (Hospitalization)
  Sender: FDA-Public Use
  Company Number: US_0502111968

PATIENT
  Age: 30 Year
  Sex: Male
  Weight: 112 kg

DRUGS (15)
  1. HUMATROPE [Suspect]
  2. CORTEF [Concomitant]
  3. SYNTHROID [Concomitant]
  4. DDAVP(DESMOPRESSIN ACETATE) [Concomitant]
  5. COZAAR [Concomitant]
  6. LASIX [Concomitant]
  7. NORVASC [Concomitant]
  8. ANDROGEL [Concomitant]
  9. ARANESP [Concomitant]
  10. CYTOXAN [Concomitant]
  11. PREDNISONE [Concomitant]
  12. ZAROXOLYN [Concomitant]
  13. LEVAQUIN [Concomitant]
  14. ZOCOR (SIMVASTATIN RATIOPHARM) [Concomitant]
  15. RENAGEL [Concomitant]

REACTIONS (17)
  - ACIDOSIS [None]
  - BLOOD CHLORIDE INCREASED [None]
  - EAR INFECTION [None]
  - FLANK PAIN [None]
  - GLOMERULONEPHRITIS MEMBRANOPROLIFERATIVE [None]
  - HAEMATOCRIT DECREASED [None]
  - HAEMATOMA [None]
  - HAEMOGLOBIN DECREASED [None]
  - IMMUNOSUPPRESSION [None]
  - INSULIN-LIKE GROWTH FACTOR INCREASED [None]
  - POST PROCEDURAL COMPLICATION [None]
  - REFUSAL OF TREATMENT BY PATIENT [None]
  - RENAL FAILURE CHRONIC [None]
  - RENAL TUBULAR ATROPHY [None]
  - SINUSITIS [None]
  - SUPRAPUBIC PAIN [None]
  - THERAPY NON-RESPONDER [None]
